FAERS Safety Report 24269523 (Version 1)
Quarter: 2024Q3

REPORT INFORMATION
  Report Type: Spontaneous
  Country: US (occurrence: None)
  Receive Date: 20240830
  Receipt Date: 20240830
  Transmission Date: 20241017
  Serious: Yes (Other)
  Sender: ASTRAZENECA
  Company Number: 2024A191966

PATIENT

DRUGS (2)
  1. IMFINZI [Suspect]
     Active Substance: DURVALUMAB
     Route: 042
  2. IMJUDO [Suspect]
     Active Substance: TREMELIMUMAB\TREMELIMUMAB-ACTL
     Route: 042

REACTIONS (6)
  - Metastases to lymph nodes [Unknown]
  - Neoplasm malignant [Unknown]
  - Cognitive disorder [Unknown]
  - Fatigue [Unknown]
  - Rash [Unknown]
  - Memory impairment [Unknown]
